FAERS Safety Report 11099123 (Version 3)
Quarter: 2015Q2

REPORT INFORMATION
  Report Type: Report from Study
  Country: CA (occurrence: None)
  Receive Date: 20150506
  Receipt Date: 20150629
  Transmission Date: 20150821
  Serious: Yes (Death, Hospitalization, Other)
  Sender: FDA-Public Use
  Company Number: 2014FE03366

PATIENT
  Age: 59 Year
  Sex: Male

DRUGS (4)
  1. VITAMIN D NOS (VITAMIN D NOS) [Concomitant]
  2. VITAMIN B12 (VITAMIN B12 NOS) [Concomitant]
  3. CALCIUM (CALCIUM) [Concomitant]
     Active Substance: CALCIUM
  4. DEGARELIX (DEGARELIX) POWDER AND SOLVENT FOR SOLUTION FOR INJECTION [Suspect]
     Active Substance: DEGARELIX
     Indication: PROSTATE CANCER
     Dosage: 80 MG, MONTHLY, FORMULATION:INJECTION, SUBCUTANEOUS
     Route: 058
     Dates: start: 20130824, end: 20150525

REACTIONS (8)
  - Dehydration [None]
  - General physical health deterioration [None]
  - Fatigue [None]
  - Paralysis [None]
  - Anaemia [None]
  - Asthenia [None]
  - Back pain [None]
  - Blood electrolytes abnormal [None]

NARRATIVE: CASE EVENT DATE: 201411
